FAERS Safety Report 9492022 (Version 1)
Quarter: 2013Q3

REPORT INFORMATION
  Report Type: Spontaneous
  Country: US (occurrence: US)
  Receive Date: 20130830
  Receipt Date: 20130830
  Transmission Date: 20140515
  Serious: No
  Sender: FDA-Public Use
  Company Number: US-B.I. PHARMACEUTICALS,INC./RIDGEFIELD-2013-BI-26584BP

PATIENT
  Age: 76 Year
  Sex: Female

DRUGS (7)
  1. PRADAXA [Suspect]
     Indication: ATRIAL FIBRILLATION
     Dosage: 300 MG
     Route: 048
  2. OMEPRAZOLE [Concomitant]
     Route: 048
  3. SPIRONOLACTONE [Concomitant]
     Dosage: 25 MG
     Route: 048
  4. CARVEDILOL [Concomitant]
     Dosage: 25 MG
     Route: 048
  5. BUMEX [Concomitant]
     Dosage: 0.5 MG
     Route: 048
  6. RYTHMOL [Concomitant]
     Route: 048
  7. LIPITOR [Concomitant]
     Dosage: 10 MG
     Route: 048

REACTIONS (2)
  - Dyspepsia [Not Recovered/Not Resolved]
  - Flatulence [Not Recovered/Not Resolved]
